FAERS Safety Report 7897633-7 (Version None)
Quarter: 2011Q4

REPORT INFORMATION
  Report Type: 
  Country: None (occurrence: None)
  Receive Date: 20111103
  Receipt Date: 20111025
  Transmission Date: 20120403
  Serious: Yes (Other)
  Sender: FDA-Public Use
  Company Number: 2011MA015560

PATIENT
  Sex: Female

DRUGS (1)
  1. METOCLOPRAMIDE [Suspect]
     Dates: start: 20050101, end: 20100201

REACTIONS (4)
  - EMOTIONAL DISORDER [None]
  - INJURY [None]
  - TARDIVE DYSKINESIA [None]
  - ECONOMIC PROBLEM [None]
